FAERS Safety Report 17602460 (Version 1)
Quarter: 2020Q1

REPORT INFORMATION
  Report Type: Spontaneous
  Country: CA (occurrence: CA)
  Receive Date: 20200331
  Receipt Date: 20200331
  Transmission Date: 20200409
  Serious: Yes (Other)
  Sender: FDA-Public Use
  Company Number: CA-SAMSUNG BIOEPIS-SB-2020-09956

PATIENT
  Age: 84 Year
  Sex: Female
  Weight: 66 kg

DRUGS (3)
  1. INFLIXIMAB [Suspect]
     Active Substance: INFLIXIMAB
     Indication: PSORIATIC ARTHROPATHY
     Route: 042
  2. INFLIXIMAB [Suspect]
     Active Substance: INFLIXIMAB
     Indication: RHEUMATOID ARTHRITIS
     Route: 042
  3. DEPO-MEDROL [Concomitant]
     Active Substance: METHYLPREDNISOLONE ACETATE
     Indication: PRODUCT USED FOR UNKNOWN INDICATION
     Dosage: SUSPENSION INTRA-ARTICULAR
     Route: 030

REACTIONS (15)
  - Fatigue [Recovered/Resolved]
  - Product use issue [Recovered/Resolved]
  - Condition aggravated [Recovered/Resolved]
  - Malaise [Recovered/Resolved]
  - Purulent discharge [Recovered/Resolved]
  - Blood pressure fluctuation [Recovered/Resolved]
  - Injection site swelling [Recovered/Resolved]
  - Therapeutic product effect incomplete [Recovered/Resolved]
  - Product use in unapproved indication [Unknown]
  - Musculoskeletal pain [Recovered/Resolved]
  - Chest discomfort [Recovered/Resolved]
  - Off label use [Recovered/Resolved]
  - Back pain [Recovered/Resolved]
  - Dizziness [Recovered/Resolved]
  - Skin ulcer [Recovered/Resolved]
